FAERS Safety Report 10081670 (Version 1)
Quarter: 2014Q2

REPORT INFORMATION
  Report Type: Spontaneous
  Country: GB (occurrence: None)
  Receive Date: 20140414
  Receipt Date: 20140414
  Transmission Date: 20141212
  Serious: Yes (Hospitalization)
  Sender: FDA-Public Use
  Company Number: AUR-APL-2014-04258

PATIENT
  Age: 68 Year
  Sex: Male
  Weight: 91 kg

DRUGS (6)
  1. AMOXICILLIN\CLAVULANIC ACID [Suspect]
     Indication: LOWER RESPIRATORY TRACT INFECTION
     Dosage: 1875MG (625MG, 3 IN 1 D) ORAL
     Route: 048
     Dates: start: 20140224, end: 20140303
  2. ALFUZOSIN [Suspect]
     Indication: BENIGN PROSTATIC HYPERPLASIA
     Dosage: 10MG (10MG, 1 IN 1D) ORAL
     Route: 048
     Dates: start: 20140204, end: 20140312
  3. AMLODIPINE (AMLODIPINE) [Concomitant]
  4. ASPIRIN [Concomitant]
  5. METFORMIN (METFORMIN) [Concomitant]
  6. OMEPRAZOLE [Concomitant]

REACTIONS (7)
  - Headache [None]
  - Jaundice [None]
  - Lethargy [None]
  - Aspartate aminotransferase increased [None]
  - Alanine aminotransferase increased [None]
  - Blood alkaline phosphatase increased [None]
  - Gamma-glutamyltransferase increased [None]
